FAERS Safety Report 6765123-0 (Version None)
Quarter: 2010Q2

REPORT INFORMATION
  Report Type: 
  Country: None (occurrence: None)
  Receive Date: 20100609
  Receipt Date: 20100609
  Transmission Date: 20101027
  Serious: Yes (Other)
  Sender: FDA-Public Use
  Company Number: None

PATIENT
  Age: 34 Year
  Sex: Male
  Weight: 140.1615 kg

DRUGS (4)
  1. WELLBUTRIN SR [Suspect]
     Indication: ANXIETY DISORDER
  2. WELLBUTRIN SR [Suspect]
     Indication: BIPOLAR I DISORDER
  3. WELLBUTRIN SR [Suspect]
     Indication: MAJOR DEPRESSION
  4. ZANTAC [Concomitant]

REACTIONS (4)
  - MUSCLE SPASMS [None]
  - NAUSEA [None]
  - PRODUCT FORMULATION ISSUE [None]
  - PRODUCT SUBSTITUTION ISSUE [None]
